FAERS Safety Report 14733275 (Version 3)
Quarter: 2018Q2

REPORT INFORMATION
  Report Type: Spontaneous
  Country: ES (occurrence: ES)
  Receive Date: 20180409
  Receipt Date: 20180521
  Transmission Date: 20180711
  Serious: Yes (Hospitalization, Other)
  Sender: FDA-Public Use
  Company Number: ES-AUROBINDO-AUR-APL-2018-018394

PATIENT
  Age: 64 Year
  Sex: Male

DRUGS (2)
  1. VORICONAZOLE. [Suspect]
     Active Substance: VORICONAZOLE
     Indication: ASPERGILLUS INFECTION
     Dosage: 6 MILLIGRAM/KILOGRAM
     Route: 042
  2. VORICONAZOLE. [Suspect]
     Active Substance: VORICONAZOLE
     Indication: ASPERGILLUS INFECTION
     Dosage: 4 MG/KG, BID (MAINTENECE DOSE)
     Route: 042

REACTIONS (4)
  - Cholestasis [Recovered/Resolved]
  - Hepatotoxicity [Recovered/Resolved]
  - Liver injury [Recovered/Resolved]
  - Hypertransaminasaemia [Recovered/Resolved]
